FAERS Safety Report 25446546 (Version 2)
Quarter: 2025Q4

REPORT INFORMATION
  Report Type: Spontaneous
  Country: EU (occurrence: EU)
  Receive Date: 20250617
  Receipt Date: 20251222
  Transmission Date: 20260117
  Serious: Yes (Hospitalization, Other)
  Sender: NOVARTIS
  Company Number: EU-SANDOZ-SDZ2025DE039783

PATIENT
  Sex: Male

DRUGS (10)
  1. COSENTYX [Suspect]
     Active Substance: SECUKINUMAB
     Indication: Psoriatic arthropathy
     Dosage: 150 MG
     Route: 065
     Dates: start: 20180802
  2. COSENTYX [Suspect]
     Active Substance: SECUKINUMAB
     Dosage: 300 MG
     Route: 065
     Dates: start: 20180802, end: 20191115
  3. COSENTYX [Suspect]
     Active Substance: SECUKINUMAB
     Dosage: 300 MG
     Route: 065
     Dates: start: 20200115, end: 20200115
  4. IBUPROFEN [Suspect]
     Active Substance: IBUPROFEN
     Indication: Product used for unknown indication
     Dosage: 1200 MG
     Route: 065
     Dates: start: 20191101
  5. IBUPROFEN [Suspect]
     Active Substance: IBUPROFEN
     Dosage: 1800 MG
     Route: 065
     Dates: start: 20230405
  6. IBUPROFEN [Suspect]
     Active Substance: IBUPROFEN
     Dosage: 600 MG
     Route: 065
     Dates: start: 20230405
  7. IBUPROFEN [Suspect]
     Active Substance: IBUPROFEN
     Dosage: 1200 MG
     Route: 065
     Dates: start: 20250317
  8. ACEMETACIN [Suspect]
     Active Substance: ACEMETACIN
     Indication: Product used for unknown indication
     Dosage: 60 MG
     Route: 065
     Dates: start: 20170301, end: 20191101
  9. ACEMETACIN [Suspect]
     Active Substance: ACEMETACIN
     Dosage: 120 MG
     Route: 065
     Dates: start: 20170301
  10. ACEMETACIN [Suspect]
     Active Substance: ACEMETACIN
     Dosage: 60 MG
     Route: 065
     Dates: start: 20200727, end: 20211215

REACTIONS (7)
  - Suicidal ideation [Unknown]
  - Alcohol poisoning [Unknown]
  - Depression [Unknown]
  - Depression [Unknown]
  - Depression [Unknown]
  - Alcoholism [Unknown]
  - Depression [Unknown]

NARRATIVE: CASE EVENT DATE: 20200812
